FAERS Safety Report 8374243-9 (Version None)
Quarter: 2012Q2

REPORT INFORMATION
  Report Type: 
  Country: None (occurrence: None)
  Receive Date: 20120518
  Receipt Date: 20120518
  Transmission Date: 20120825
  Serious: Yes (Hospitalization)
  Sender: FDA-Public Use
  Company Number: None

PATIENT
  Age: 92 Year
  Sex: Male

DRUGS (2)
  1. PROCRIT [Suspect]
     Indication: NEPHROGENIC ANAEMIA
     Dosage: 40000 UNITS EVERY TWO WEEKS SQ
     Route: 058
     Dates: start: 20120319, end: 20120515
  2. PROCRIT [Suspect]
     Indication: RENAL FAILURE CHRONIC
     Dosage: 40000 UNITS EVERY TWO WEEKS SQ
     Route: 058
     Dates: start: 20120319, end: 20120515

REACTIONS (1)
  - HOSPITALISATION [None]
